FAERS Safety Report 13140761 (Version 1)
Quarter: 2017Q1

REPORT INFORMATION
  Report Type: Spontaneous
  Country: CA (occurrence: CA)
  Receive Date: 20170123
  Receipt Date: 20170123
  Transmission Date: 20170428
  Serious: Yes (Other)
  Sender: FDA-Public Use
  Company Number: CA-BRACCO-001072

PATIENT
  Age: 9 Year
  Sex: Female
  Weight: 31 kg

DRUGS (2)
  1. ISOVUE 300 [Suspect]
     Active Substance: IOPAMIDOL
     Indication: VENOGRAM
     Route: 042
     Dates: start: 20160416, end: 20160416
  2. KETAMINE [Concomitant]
     Active Substance: KETAMINE
     Indication: SEDATION
     Dosage: 1.5 MG/KG
     Route: 030
     Dates: start: 20160416, end: 20160416

REACTIONS (3)
  - Paraesthesia oral [Unknown]
  - Eye swelling [Unknown]
  - Loose tooth [Unknown]

NARRATIVE: CASE EVENT DATE: 20160416
